FAERS Safety Report 12586717 (Version 1)
Quarter: 2016Q3

REPORT INFORMATION
  Report Type: Spontaneous
  Country: US (occurrence: None)
  Receive Date: 20160722
  Receipt Date: 20160722
  Transmission Date: 20161109
  Serious: No
  Sender: FDA-Public Use
  Company Number: None

PATIENT
  Age: 45 Year
  Sex: Male

DRUGS (8)
  1. AMPYRA [Suspect]
     Active Substance: DALFAMPRIDINE
     Indication: MULTIPLE SCLEROSIS
     Route: 048
     Dates: start: 20160617
  2. HYDROCODONE BITARTRATE AND ACETAMINOPHEN [Concomitant]
     Active Substance: ACETAMINOPHEN\HYDROCODONE BITARTRATE
  3. MUPIROCIN. [Concomitant]
     Active Substance: MUPIROCIN
  4. IBUPROFEN. [Concomitant]
     Active Substance: IBUPROFEN
  5. BACLOFEN. [Concomitant]
     Active Substance: BACLOFEN
  6. NORTRIPTYLINE [Concomitant]
     Active Substance: NORTRIPTYLINE
  7. GABAPENTIN. [Concomitant]
     Active Substance: GABAPENTIN
  8. SILDENAFIL. [Concomitant]
     Active Substance: SILDENAFIL

REACTIONS (2)
  - B-lymphocyte count increased [None]
  - Laboratory test abnormal [None]

NARRATIVE: CASE EVENT DATE: 20160617
